FAERS Safety Report 6411262-3 (Version None)
Quarter: 2009Q4

REPORT INFORMATION
  Report Type: 
  Country: None (occurrence: None)
  Receive Date: 20091022
  Receipt Date: 20091013
  Transmission Date: 20100525
  Serious: Yes (Other)
  Sender: FDA-Public Use
  Company Number: DE-PFIZER INC-2009261447

PATIENT
  Age: 58 Year

DRUGS (1)
  1. INSPRA [Suspect]
     Dosage: 50 MG, 1X/DAY
     Route: 048
     Dates: start: 20090522

REACTIONS (2)
  - HYPERTHYROIDISM [None]
  - THYROID NEOPLASM [None]
